FAERS Safety Report 24085476 (Version 1)
Quarter: 2024Q3

REPORT INFORMATION
  Report Type: Spontaneous
  Country: US (occurrence: None)
  Receive Date: 20240712
  Receipt Date: 20240712
  Transmission Date: 20241016
  Serious: Yes (Hospitalization)
  Sender: Public
  Company Number: None

PATIENT
  Sex: Male

DRUGS (3)
  1. LENALIDOMIDE [Suspect]
     Active Substance: LENALIDOMIDE
     Route: 048
     Dates: start: 202303
  2. LENALIDOMIDE [Concomitant]
  3. CAMZYOS [Concomitant]

REACTIONS (5)
  - Pyrexia [None]
  - Therapy interrupted [None]
  - Peroneal nerve palsy [None]
  - Oxygen saturation decreased [None]
  - Gallbladder disorder [None]
